FAERS Safety Report 7757251-8 (Version None)
Quarter: 2011Q3

REPORT INFORMATION
  Report Type: 
  Country: None (occurrence: None)
  Receive Date: 20110916
  Receipt Date: 20110912
  Transmission Date: 20111222
  Serious: Yes (Other)
  Sender: FDA-Public Use
  Company Number: CH-PFIZER INC-2011214698

PATIENT
  Age: 34 Year
  Sex: Male

DRUGS (1)
  1. LYRICA [Suspect]
     Dosage: 3 G WITHIN 24 TO 48 HOURS (2 GRAM AND A FEW HOURS LATER ANOTHER 1 GRAM)
     Route: 048

REACTIONS (8)
  - CONFUSIONAL STATE [None]
  - DRY MOUTH [None]
  - AFFECTIVE DISORDER [None]
  - AGITATION [None]
  - MUSCLE SPASMS [None]
  - LIBIDO INCREASED [None]
  - SEXUAL ACTIVITY INCREASED [None]
  - OVERDOSE [None]
